FAERS Safety Report 14466151 (Version 1)
Quarter: 2018Q1

REPORT INFORMATION
  Report Type: Spontaneous
  Country: US (occurrence: US)
  Receive Date: 20180131
  Receipt Date: 20180131
  Transmission Date: 20180509
  Serious: No
  Sender: FDA-Public Use
  Company Number: US-ASTRAZENECA-2018SE09631

PATIENT
  Age: 257 Day
  Sex: Female
  Weight: 6.6 kg

DRUGS (1)
  1. SYNAGIS [Suspect]
     Active Substance: PALIVIZUMAB
     Indication: ANTIVIRAL PROPHYLAXIS
     Route: 030
     Dates: start: 20171103

REACTIONS (2)
  - Respiratory tract infection [Recovering/Resolving]
  - Wrong dose [Unknown]

NARRATIVE: CASE EVENT DATE: 20180104
